FAERS Safety Report 9147349 (Version 1)
Quarter: 2013Q1

REPORT INFORMATION
  Report Type: Spontaneous
  Country: US (occurrence: US)
  Receive Date: 20130307
  Receipt Date: 20130307
  Transmission Date: 20140127
  Serious: Yes (Other)
  Sender: FDA-Public Use
  Company Number: US-GLAXOSMITHKLINE-A1014407A

PATIENT
  Age: 75 Year
  Sex: Male

DRUGS (1)
  1. SORIATANE [Suspect]
     Indication: MYCOSIS FUNGOIDES
     Dosage: 25MG PER DAY
     Route: 048
     Dates: start: 20121203

REACTIONS (2)
  - Osteoporosis [Unknown]
  - Off label use [Unknown]
